FAERS Safety Report 4740512-4 (Version None)
Quarter: 2005Q3

REPORT INFORMATION
  Report Type: 
  Country: None (occurrence: None)
  Receive Date: 20050804
  Receipt Date: 20050607
  Transmission Date: 20060218
  Serious: No
  Sender: FDA-Public Use
  Company Number: FACT0500451

PATIENT
  Age: 38 Year
  Sex: Female
  Weight: 77.1 kg

DRUGS (3)
  1. FACTIVE [Suspect]
     Indication: RESPIRATORY TRACT INFECTION BACTERIAL
     Dosage: 320 MG, QD, ORAL
     Route: 048
     Dates: start: 20050524, end: 20050530
  2. ZYRTEC [Concomitant]
  3. NEXIUM [Concomitant]

REACTIONS (2)
  - RASH GENERALISED [None]
  - SWELLING FACE [None]
